FAERS Safety Report 13570648 (Version 1)
Quarter: 2017Q2

REPORT INFORMATION
  Report Type: Spontaneous
  Country: IR (occurrence: IR)
  Receive Date: 20170523
  Receipt Date: 20170523
  Transmission Date: 20170830
  Serious: Yes (Death, Other)
  Sender: FDA-Public Use
  Company Number: IR-ALEMBIC PHARMACUETICALS LIMITED-2017SCAL000424

PATIENT

DRUGS (1)
  1. LITHIUM CARBONATE. [Suspect]
     Active Substance: LITHIUM CARBONATE
     Indication: PRODUCT USED FOR UNKNOWN INDICATION
     Dosage: UNK
     Route: 064

REACTIONS (4)
  - Apgar score abnormal [Fatal]
  - Foetal exposure during pregnancy [Unknown]
  - Toxicity to various agents [Fatal]
  - Foetal heart rate decreased [Fatal]
